FAERS Safety Report 5697857-3 (Version None)
Quarter: 2008Q2

REPORT INFORMATION
  Report Type: 
  Country: None (occurrence: None)
  Receive Date: 20080404
  Receipt Date: 20080404
  Transmission Date: 20081010
  Serious: Yes (Other)
  Sender: FDA-Public Use
  Company Number: None

PATIENT
  Age: 35 Year
  Sex: Male
  Weight: 100.6985 kg

DRUGS (3)
  1. CHANTIX [Suspect]
     Indication: SMOKING CESSATION THERAPY
     Dosage: CONTINUING PACK AS DIRECTED ON PACKAGE (1MG BID)
     Dates: start: 20071101
  2. CHANTIX [Suspect]
     Indication: SMOKING CESSATION THERAPY
     Dosage: CONTINUING PACK AS DIRECTED ON PACKAGE (1MG BID)
     Dates: start: 20071201
  3. WELLBUTRIN XL [Concomitant]

REACTIONS (2)
  - CONDITION AGGRAVATED [None]
  - SUICIDAL IDEATION [None]
